FAERS Safety Report 18740541 (Version 1)
Quarter: 2021Q1

REPORT INFORMATION
  Report Type: Spontaneous
  Country: GR (occurrence: GR)
  Receive Date: 20210114
  Receipt Date: 20210114
  Transmission Date: 20210419
  Serious: Yes (Other)
  Sender: FDA-Public Use
  Company Number: GR-MYLANLABS-2021M1001624

PATIENT
  Age: 40 Year
  Sex: Female

DRUGS (3)
  1. ESCITALOPRAM MYLAN GENERICS [Suspect]
     Active Substance: ESCITALOPRAM OXALATE
     Indication: DEPRESSION
     Dosage: LOW DOSE
  2. QUETIAPINA MYLAN GENERICS [Suspect]
     Active Substance: QUETIAPINE
     Indication: MANIA
     Dosage: UNK
  3. ESCITALOPRAM MYLAN GENERICS [Suspect]
     Active Substance: ESCITALOPRAM OXALATE
     Indication: DEPRESSED MOOD

REACTIONS (3)
  - Intentional product misuse [Unknown]
  - Mania [Recovering/Resolving]
  - Treatment noncompliance [Unknown]
